APPROVED DRUG PRODUCT: TERIFLUNOMIDE
Active Ingredient: TERIFLUNOMIDE
Strength: 7MG
Dosage Form/Route: TABLET;ORAL
Application: A209613 | Product #001
Applicant: AMNEAL PHARMACEUTICALS CO GMBH
Approved: Sep 28, 2018 | RLD: No | RS: No | Type: DISCN